FAERS Safety Report 6823150-9 (Version None)
Quarter: 2010Q3

REPORT INFORMATION
  Report Type: 
  Country: None (occurrence: None)
  Receive Date: 20100708
  Receipt Date: 20100706
  Transmission Date: 20110219
  Serious: Yes (Hospitalization, Other)
  Sender: FDA-Public Use
  Company Number: US-ROXANE LABORATORIES, INC.-2010-RO-00787RO

PATIENT
  Age: 20 Year
  Sex: Male

DRUGS (5)
  1. LITHIUM CARBONATE [Suspect]
     Dosage: 900 MG
  2. LITHIUM CARBONATE [Suspect]
     Dosage: 900 MG
  3. CLOZAPINE [Suspect]
     Dosage: 600 MG
  4. CLOZAPINE [Suspect]
     Dosage: 550 MG
  5. HALOPERIDOL [Concomitant]
     Indication: PSYCHOTIC DISORDER
     Dosage: 5 MG

REACTIONS (3)
  - GRAND MAL CONVULSION [None]
  - MUSCLE TWITCHING [None]
  - NAUSEA [None]
